FAERS Safety Report 14611612 (Version 1)
Quarter: 2018Q1

REPORT INFORMATION
  Report Type: Spontaneous
  Country: JP (occurrence: JP)
  Receive Date: 20180308
  Receipt Date: 20180308
  Transmission Date: 20180509
  Serious: Yes (Hospitalization, Other)
  Sender: FDA-Public Use
  Company Number: JP-009507513-1803JPN000160J

PATIENT
  Age: 95 Year
  Sex: Female

DRUGS (8)
  1. BELSOMRA [Suspect]
     Active Substance: SUVOREXANT
     Indication: INSOMNIA
     Dosage: 15 MG, QD
     Route: 048
     Dates: start: 201705, end: 20180128
  2. JU-KAMA [Concomitant]
     Active Substance: MAGNESIUM OXIDE
     Dosage: UNK
     Route: 065
  3. SODIUM PICOSULFATE HYDRATE [Concomitant]
     Active Substance: SODIUM PICOSULFATE
     Dosage: UNK
     Route: 048
  4. BELSOMRA [Suspect]
     Active Substance: SUVOREXANT
     Dosage: 20 MG, QD
     Route: 048
     Dates: start: 20170129
  5. MUCOSTA [Concomitant]
     Active Substance: REBAMIPIDE
     Dosage: UNK
     Route: 048
  6. ROZEREM [Suspect]
     Active Substance: RAMELTEON
     Indication: INSOMNIA
     Dosage: 8 MG, QD
     Route: 048
     Dates: start: 20171211
  7. LOXONIN [Concomitant]
     Active Substance: LOXOPROFEN SODIUM
     Dosage: UNK
     Route: 048
  8. SENNOSIDE [Concomitant]
     Active Substance: SENNOSIDES
     Dosage: UNK
     Route: 048

REACTIONS (4)
  - Prescribed overdose [Unknown]
  - Fall [Not Recovered/Not Resolved]
  - Femur fracture [Not Recovered/Not Resolved]
  - Off label use [Unknown]

NARRATIVE: CASE EVENT DATE: 20180129
